FAERS Safety Report 5883420-8 (Version None)
Quarter: 2008Q3

REPORT INFORMATION
  Report Type: 
  Country: None (occurrence: None)
  Receive Date: 20080915
  Receipt Date: 20080904
  Transmission Date: 20090109
  Serious: Yes (Other)
  Sender: FDA-Public Use
  Company Number: US-BAYER-200828653NA

PATIENT
  Age: 59 Year
  Sex: Male

DRUGS (1)
  1. CIPRO [Suspect]
     Indication: INFECTION PROPHYLAXIS
     Route: 048

REACTIONS (5)
  - ARTHRALGIA [None]
  - GAIT DISTURBANCE [None]
  - JOINT SWELLING [None]
  - TENDON PAIN [None]
  - TENDONITIS [None]
